FAERS Safety Report 6546432-7 (Version None)
Quarter: 2010Q1

REPORT INFORMATION
  Report Type: 
  Country: None (occurrence: None)
  Receive Date: 20100122
  Receipt Date: 20100111
  Transmission Date: 20100710
  Serious: Yes (Other)
  Sender: FDA-Public Use
  Company Number: PHHY2009IE36034

PATIENT
  Sex: Male

DRUGS (2)
  1. CLOZARIL [Suspect]
     Indication: SCHIZOPHRENIA
     Dosage: 400 MG, UNK
     Route: 048
     Dates: start: 20010701
  2. CLOZARIL [Suspect]
     Dosage: 800 MG, UNK
     Route: 048
     Dates: start: 20090822

REACTIONS (3)
  - HEART RATE INCREASED [None]
  - INCORRECT DOSE ADMINISTERED [None]
  - SOMNOLENCE [None]
